FAERS Safety Report 6771372-8 (Version None)
Quarter: 2010Q2

REPORT INFORMATION
  Report Type: 
  Country: None (occurrence: None)
  Receive Date: 20100520
  Receipt Date: 20090310
  Transmission Date: 20101027
  Serious: Yes (Other)
  Sender: FDA-Public Use
  Company Number: 2009181562

PATIENT
  Age: 60 Year
  Sex: Female
  Weight: 68 kg

DRUGS (9)
  1. PROVERA [Suspect]
     Indication: CARDIAC DISORDER
     Dates: start: 19960101, end: 19990101
  2. PROVERA [Suspect]
     Indication: MENOPAUSAL SYMPTOMS
     Dates: start: 19960101, end: 19990101
  3. PROVERA [Suspect]
     Indication: OSTEOPOROSIS PROPHYLAXIS
     Dates: start: 19960101, end: 19990101
  4. MEDROXYPROGESTERONE ACETATE [Suspect]
     Indication: CARDIAC DISORDER
     Dates: start: 19990101, end: 20030101
  5. MEDROXYPROGESTERONE ACETATE [Suspect]
     Indication: MENOPAUSAL SYMPTOMS
     Dates: start: 19990101, end: 20030101
  6. MEDROXYPROGESTERONE ACETATE [Suspect]
     Indication: OSTEOPOROSIS PROPHYLAXIS
     Dates: start: 19990101, end: 20030101
  7. PREMARIN [Suspect]
     Indication: MENOPAUSAL SYMPTOMS
     Dates: start: 19960101, end: 19990101
  8. VIVELLE [Suspect]
     Dates: start: 19990101, end: 20030101
  9. PROTONIX [Concomitant]

REACTIONS (1)
  - BREAST CANCER [None]
